FAERS Safety Report 8433969-9 (Version None)
Quarter: 2012Q2

REPORT INFORMATION
  Report Type: 
  Country: None (occurrence: None)
  Receive Date: 20120613
  Receipt Date: 20120606
  Transmission Date: 20120825
  Serious: Yes (Other)
  Sender: FDA-Public Use
  Company Number: US-INCYTE CORPORATION-2012IN000801

PATIENT
  Sex: Male
  Weight: 86.168 kg

DRUGS (6)
  1. JAKAFI [Suspect]
     Indication: MYELOFIBROSIS
     Dosage: 15 MG, BID
     Route: 048
     Dates: start: 20120228, end: 20120101
  2. LOVASTATIN [Concomitant]
  3. JAKAFI [Suspect]
     Dosage: UNK
     Dates: start: 20120531
  4. FLOMAX [Concomitant]
  5. ASPIRIN [Concomitant]
  6. WARFARIN SODIUM [Concomitant]

REACTIONS (2)
  - DEEP VEIN THROMBOSIS [None]
  - HAEMOGLOBIN DECREASED [None]
